FAERS Safety Report 10037126 (Version 3)
Quarter: 2014Q2

REPORT INFORMATION
  Report Type: Spontaneous
  Country: AR (occurrence: AR)
  Receive Date: 20140326
  Receipt Date: 20140418
  Transmission Date: 20141212
  Serious: Yes (Other)
  Sender: FDA-Public Use
  Company Number: AR-AMGEN-ARGSP2014012883

PATIENT
  Age: 72 Year
  Sex: Female

DRUGS (1)
  1. ENBREL [Suspect]
     Indication: PSORIATIC ARTHROPATHY
     Dosage: 25 MG, TWICE A WEEK
     Route: 065
     Dates: start: 20060728, end: 20140121

REACTIONS (10)
  - Fall [Unknown]
  - Ligament sprain [Unknown]
  - Upper limb fracture [Unknown]
  - Red blood cell count decreased [Unknown]
  - Contusion [Unknown]
  - Mouth haemorrhage [Unknown]
  - Arthralgia [Unknown]
  - Joint range of motion decreased [Unknown]
  - Cystitis [Unknown]
  - Urinary tract disorder [Not Recovered/Not Resolved]
